FAERS Safety Report 23464024 (Version 2)
Quarter: 2025Q2

REPORT INFORMATION
  Report Type: Report from Study
  Country: CA (occurrence: CA)
  Receive Date: 20240201
  Receipt Date: 20250430
  Transmission Date: 20250717
  Serious: Yes (Other)
  Sender: TAKEDA
  Company Number: CA-TAKEDA-2024TUS008044

PATIENT
  Age: 62 Year
  Sex: Female

DRUGS (4)
  1. VEDOLIZUMAB [Suspect]
     Active Substance: VEDOLIZUMAB
     Indication: Crohn^s disease
  2. VEDOLIZUMAB [Suspect]
     Active Substance: VEDOLIZUMAB
  3. REMICADE [Concomitant]
     Active Substance: INFLIXIMAB
  4. WARFARIN [Concomitant]
     Active Substance: WARFARIN

REACTIONS (3)
  - Ulcerative keratitis [Unknown]
  - Aortic dissection [Unknown]
  - Hordeolum [Recovering/Resolving]

NARRATIVE: CASE EVENT DATE: 20240401
